FAERS Safety Report 17196059 (Version 1)
Quarter: 2019Q4

REPORT INFORMATION
  Report Type: Spontaneous
  Country: CA (occurrence: CA)
  Receive Date: 20191224
  Receipt Date: 20191224
  Transmission Date: 20200122
  Serious: Yes (Other)
  Sender: FDA-Public Use
  Company Number: CA-SHIRE-CA201944137

PATIENT

DRUGS (1)
  1. GAMMAGARD LIQUID [Suspect]
     Active Substance: HUMAN IMMUNOGLOBULIN G
     Indication: AMYOTROPHIC LATERAL SCLEROSIS
     Dosage: 20 GRAM, ONCE
     Route: 042

REACTIONS (6)
  - Infusion related reaction [Unknown]
  - Hypoxia [Unknown]
  - Hypertension [Unknown]
  - Intentional product use issue [Unknown]
  - Abdominal pain [Unknown]
  - Chills [Unknown]
